FAERS Safety Report 7534973-5 (Version None)
Quarter: 2011Q2

REPORT INFORMATION
  Report Type: 
  Country: None (occurrence: None)
  Receive Date: 20110609
  Receipt Date: 20081230
  Transmission Date: 20111010
  Serious: Yes (Hospitalization)
  Sender: FDA-Public Use
  Company Number: PHHY2008CA29317

PATIENT
  Sex: Female

DRUGS (1)
  1. SANDOSTATIN LAR [Suspect]
     Indication: BRONCHIAL CARCINOMA
     Dosage: 30 MG, OT
     Route: 030
     Dates: start: 20080101, end: 20081121

REACTIONS (4)
  - GENERAL PHYSICAL HEALTH DETERIORATION [None]
  - BLOOD CREATININE INCREASED [None]
  - BLOOD PRESSURE INADEQUATELY CONTROLLED [None]
  - PAIN [None]
